FAERS Safety Report 13215144 (Version 1)
Quarter: 2017Q1

REPORT INFORMATION
  Report Type: Report from Study
  Country: CA (occurrence: CA)
  Receive Date: 20170210
  Receipt Date: 20170210
  Transmission Date: 20170428
  Serious: Yes (Hospitalization, Other)
  Sender: FDA-Public Use
  Company Number: CA-BAXTER-2017BAX004971

PATIENT
  Age: 56 Year
  Sex: Female
  Weight: 60.3 kg

DRUGS (43)
  1. VINCRISTINE [Suspect]
     Active Substance: VINCRISTINE
     Dosage: MOST RECENT DOSE PRIOR TO ONSET OF SERIOUS ADVERSE EVENT FEBRILE NEUTROPENIA FIRST EPISODE
     Route: 042
     Dates: start: 20140710
  2. COLACE [Concomitant]
     Active Substance: DOCUSATE SODIUM
     Indication: CONSTIPATION
     Route: 048
     Dates: start: 20140430
  3. HYDROMORPHONE [Concomitant]
     Active Substance: HYDROMORPHONE
     Indication: PRODUCT USED FOR UNKNOWN INDICATION
     Route: 048
     Dates: start: 20140523
  4. FRAGMIN [Concomitant]
     Active Substance: DALTEPARIN SODIUM
     Indication: PROPHYLAXIS
     Dosage: 12000 CC
     Route: 058
     Dates: start: 20140828, end: 20140923
  5. PROCYTOX (CYCLOPHOSPHAMIDE) 2000MG/VIAL [Suspect]
     Active Substance: CYCLOPHOSPHAMIDE
     Dosage: MOST RECENT DOSE PRIOR TO ONSET OF SERIOUS ADVERSE EVENT FEBRILE NEUTROPENIA FIRST EPISODE
     Route: 042
     Dates: start: 20140710
  6. ONDANSETRON [Concomitant]
     Active Substance: ONDANSETRON
     Indication: NAUSEA
     Route: 048
     Dates: start: 20140515
  7. LORAZEPAM. [Concomitant]
     Active Substance: LORAZEPAM
     Indication: INSOMNIA
     Route: 048
     Dates: start: 20140523, end: 20140526
  8. SENNOSIDES. [Concomitant]
     Active Substance: SENNOSIDES
     Indication: PRODUCT USED FOR UNKNOWN INDICATION
     Route: 065
  9. CIPROFLOXACIN. [Concomitant]
     Active Substance: CIPROFLOXACIN
     Indication: LYMPHOCYTE COUNT DECREASED
  10. CIPROFLOXACIN. [Concomitant]
     Active Substance: CIPROFLOXACIN
     Indication: CONDITION AGGRAVATED
  11. RITUXIMAB [Suspect]
     Active Substance: RITUXIMAB
     Dosage: MOST RECENT DOSE PRIOR TO ONSET OF SERIOUS ADVERSE EVENT FEBRILE NEUTROPENIA FIRST EPISODE
     Route: 058
     Dates: start: 20140710, end: 20140710
  12. RITUXIMAB [Suspect]
     Active Substance: RITUXIMAB
     Dosage: INTENDED TOTAL DOSE-1400 MG ACTUAL DOSE 600 MG
     Route: 058
     Dates: start: 20140911, end: 20140911
  13. DILAUDID [Concomitant]
     Active Substance: HYDROMORPHONE HYDROCHLORIDE
     Indication: ABDOMINAL PAIN
     Route: 048
     Dates: start: 20140523
  14. TYLENOL [Concomitant]
     Active Substance: ACETAMINOPHEN
     Indication: PAIN
     Dosage: 1 - 2 TABLET
     Route: 048
     Dates: start: 20140729
  15. PROCYTOX (CYCLOPHOSPHAMIDE) 2000MG/VIAL [Suspect]
     Active Substance: CYCLOPHOSPHAMIDE
     Indication: DIFFUSE LARGE B-CELL LYMPHOMA
     Dosage: 750 MG/M2
     Route: 042
     Dates: start: 20140529
  16. RITUXIMAB [Suspect]
     Active Substance: RITUXIMAB
     Dosage: CYCLE 4 AS PER PROTOCOL
     Route: 058
     Dates: start: 20140815, end: 20140815
  17. DOXORUBICIN [Suspect]
     Active Substance: DOXORUBICIN
     Indication: DIFFUSE LARGE B-CELL LYMPHOMA
     Route: 042
     Dates: start: 20140529
  18. SERTRALINE [Concomitant]
     Active Substance: SERTRALINE HYDROCHLORIDE
     Indication: DEPRESSION
     Route: 048
     Dates: start: 20140905
  19. VINCRISTINE [Suspect]
     Active Substance: VINCRISTINE
     Indication: DIFFUSE LARGE B-CELL LYMPHOMA
     Route: 042
     Dates: start: 20140529
  20. PREDNISOLONE. [Suspect]
     Active Substance: PREDNISOLONE
     Indication: DIFFUSE LARGE B-CELL LYMPHOMA
     Route: 065
  21. PREDNISONE. [Concomitant]
     Active Substance: PREDNISONE
     Route: 048
     Dates: start: 20140619, end: 20140623
  22. PREDNISONE. [Concomitant]
     Active Substance: PREDNISONE
     Route: 048
     Dates: start: 20141002, end: 20141006
  23. NYSTATIN. [Concomitant]
     Active Substance: NYSTATIN
     Indication: DRY MOUTH
     Dosage: UNIT DOSE: 500,000 US/S
     Route: 048
     Dates: start: 20140611
  24. CLAVULIN [Concomitant]
     Active Substance: AMOXICILLIN\CLAVULANIC ACID
     Indication: PROPHYLAXIS
     Route: 048
     Dates: start: 20140905, end: 20140912
  25. KEFLEX [Concomitant]
     Active Substance: CEPHALEXIN
     Indication: PRODUCT USED FOR UNKNOWN INDICATION
     Route: 048
     Dates: start: 20141112
  26. CIPROFLOXACIN. [Concomitant]
     Active Substance: CIPROFLOXACIN
     Indication: PRODUCT USED FOR UNKNOWN INDICATION
     Route: 065
     Dates: start: 20140714
  27. RITUXIMAB [Suspect]
     Active Substance: RITUXIMAB
     Dosage: TREATMENT ARM A, FREQUENCY AS PER PROTOCOL DAY 1 CYCLES 1 AND 4 TO 8.
     Route: 042
     Dates: start: 20141002, end: 20141002
  28. DOXORUBICIN [Suspect]
     Active Substance: DOXORUBICIN
     Dosage: MOST RECENT DOSE PRIOR TO ONSET OF SERIOUS ADVERSE EVENT FEBRILE NEUTROPENIA FIRST EPISODE
     Route: 042
     Dates: start: 20140710
  29. LACTULOSE. [Concomitant]
     Active Substance: LACTULOSE
     Indication: CONSTIPATION PROPHYLAXIS
     Dosage: 30 CC
     Route: 048
     Dates: start: 20140527
  30. ONDANSETRON [Concomitant]
     Active Substance: ONDANSETRON
     Indication: DEPRESSION
     Route: 048
     Dates: start: 20140910
  31. PREDNISONE. [Concomitant]
     Active Substance: PREDNISONE
     Route: 048
     Dates: start: 20140710, end: 20140714
  32. NEULASTA [Concomitant]
     Active Substance: PEGFILGRASTIM
     Indication: PROPHYLAXIS
     Route: 058
     Dates: start: 20141003, end: 20141003
  33. GRANULOCYTE COLONY STIMULATING FACTOR [Concomitant]
     Active Substance: GRANULOCYTE COLONY-STIMULATING FACTOR NOS
     Indication: PRODUCT USED FOR UNKNOWN INDICATION
     Route: 065
  34. ALLOPURINOL. [Concomitant]
     Active Substance: ALLOPURINOL
     Indication: PROPHYLAXIS
     Route: 048
     Dates: start: 20140523, end: 20140606
  35. PREDNISONE. [Concomitant]
     Active Substance: PREDNISONE
     Indication: PROPHYLAXIS
     Route: 048
     Dates: start: 20140523, end: 20140527
  36. ZOPICLONE [Concomitant]
     Active Substance: ZOPICLONE
     Indication: PRODUCT USED FOR UNKNOWN INDICATION
     Route: 065
     Dates: start: 20140714
  37. MELOXICAM. [Concomitant]
     Active Substance: MELOXICAM
     Indication: PAIN IN EXTREMITY
     Route: 048
     Dates: start: 20140814, end: 20140820
  38. FRAGMIN [Concomitant]
     Active Substance: DALTEPARIN SODIUM
     Dosage: 10000 CC
     Route: 058
     Dates: start: 20140923
  39. RITUXIMAB [Suspect]
     Active Substance: RITUXIMAB
     Indication: DIFFUSE LARGE B-CELL LYMPHOMA
     Dosage: TREATMENT ARM A, FREQUENCY AS PER PROTOCOL DAY 1 CYCLES 1 AND 4 TO 8.
     Route: 042
     Dates: start: 20140528, end: 20140528
  40. RITUXIMAB [Suspect]
     Active Substance: RITUXIMAB
     Indication: DIFFUSE LARGE B-CELL LYMPHOMA
     Dosage: FREQUENCY AS PER PROTOCOL DAY 1 CYCLES 2 TO 4
     Route: 058
     Dates: start: 20140619, end: 20140619
  41. STEMETIL [Concomitant]
     Active Substance: PROCHLORPERAZINE MALEATE
     Indication: PROPHYLAXIS OF NAUSEA AND VOMITING
     Route: 048
     Dates: start: 20140527
  42. PREDNISONE. [Concomitant]
     Active Substance: PREDNISONE
     Route: 048
     Dates: start: 20140528, end: 20140601
  43. TYLENOL [Concomitant]
     Active Substance: ACETAMINOPHEN
     Indication: PYREXIA
     Route: 048
     Dates: start: 20140827, end: 20140827

REACTIONS (10)
  - Abdominal pain [Unknown]
  - White blood cell count decreased [Recovered/Resolved]
  - Lymphocyte count decreased [Recovered/Resolved]
  - Condition aggravated [Recovered/Resolved]
  - Small intestinal perforation [Recovered/Resolved]
  - Febrile neutropenia [Recovered/Resolved]
  - Febrile neutropenia [Recovered/Resolved]
  - Lymphocyte count decreased [Not Recovered/Not Resolved]
  - Intestinal fistula [Not Recovered/Not Resolved]
  - Neutrophil count decreased [Recovered/Resolved]

NARRATIVE: CASE EVENT DATE: 20140622
